APPROVED DRUG PRODUCT: ALBUTEROL SULFATE
Active Ingredient: ALBUTEROL SULFATE
Strength: EQ 2MG BASE
Dosage Form/Route: TABLET;ORAL
Application: A072817 | Product #001
Applicant: WARNER CHILCOTT DIV WARNER LAMBERT CO
Approved: Jan 9, 1990 | RLD: No | RS: No | Type: DISCN